FAERS Safety Report 6036776-X (Version None)
Quarter: 2009Q1

REPORT INFORMATION
  Report Type: 
  Country: None (occurrence: None)
  Receive Date: 20090114
  Receipt Date: 20090108
  Transmission Date: 20090719
  Serious: Yes (Hospitalization)
  Sender: FDA-Public Use
  Company Number: JP-JNJFOC-20090102324

PATIENT
  Age: 8 Decade
  Sex: Male

DRUGS (1)
  1. CRAVIT [Suspect]
     Indication: URINARY TRACT INFECTION
     Route: 048

REACTIONS (1)
  - MYOCLONUS [None]
